FAERS Safety Report 12531655 (Version 1)
Quarter: 2016Q3

REPORT INFORMATION
  Report Type: Spontaneous
  Country: US (occurrence: US)
  Receive Date: 20160706
  Receipt Date: 20160706
  Transmission Date: 20161109
  Serious: No
  Sender: FDA-Public Use
  Company Number: US-BAUSCH-BL-2016-002883

PATIENT
  Age: 56 Year
  Sex: Male
  Weight: 79.45 kg

DRUGS (1)
  1. OFLOXACIN OPHTHALMIC [Suspect]
     Active Substance: OFLOXACIN
     Indication: EAR INFECTION
     Route: 001
     Dates: start: 20160129

REACTIONS (3)
  - No adverse event [Unknown]
  - Off label use [Not Recovered/Not Resolved]
  - Incorrect route of drug administration [Unknown]

NARRATIVE: CASE EVENT DATE: 20160129
